FAERS Safety Report 9331370 (Version 1)
Quarter: 2013Q2

REPORT INFORMATION
  Report Type: Spontaneous
  Country: US (occurrence: US)
  Receive Date: 20130605
  Receipt Date: 20130605
  Transmission Date: 20140414
  Serious: No
  Sender: FDA-Public Use
  Company Number: US-009507513-1305USA006262

PATIENT
  Sex: Female

DRUGS (1)
  1. ASMANEX TWISTHALER [Suspect]
     Dosage: 220 MICROGRAM, ONE INHALATION PER DAY
     Route: 055

REACTIONS (3)
  - Dyspnoea [Recovering/Resolving]
  - Product container issue [Unknown]
  - Drug dose omission [Unknown]
